FAERS Safety Report 14032587 (Version 1)
Quarter: 2017Q4

REPORT INFORMATION
  Report Type: Spontaneous
  Country: DE (occurrence: DE)
  Receive Date: 20171003
  Receipt Date: 20171003
  Transmission Date: 20180321
  Serious: Yes (Life-Threatening, Hospitalization, Other)
  Sender: FDA-Public Use
  Company Number: DE-ACCORD-059637

PATIENT
  Age: 47 Year
  Sex: Male
  Weight: 86 kg

DRUGS (3)
  1. FLUOROURACIL. [Concomitant]
     Active Substance: FLUOROURACIL
     Indication: CARCINOID TUMOUR OF THE CAECUM
     Dates: start: 20170726
  2. OXALIPLATIN. [Suspect]
     Active Substance: OXALIPLATIN
     Indication: CARCINOID TUMOUR OF THE CAECUM
     Route: 042
     Dates: start: 20170726
  3. FOLINIC ACID [Concomitant]
     Active Substance: LEUCOVORIN
     Indication: CARCINOID TUMOUR OF THE CAECUM
     Dates: start: 20170726

REACTIONS (4)
  - Anaemia [Not Recovered/Not Resolved]
  - Tubulointerstitial nephritis [Unknown]
  - Blood urea increased [Recovering/Resolving]
  - Acute kidney injury [Recovering/Resolving]

NARRATIVE: CASE EVENT DATE: 20170728
